FAERS Safety Report 6925150-7 (Version None)
Quarter: 2010Q3

REPORT INFORMATION
  Report Type: 
  Country: None (occurrence: None)
  Receive Date: 20100810
  Receipt Date: 20100729
  Transmission Date: 20110219
  Serious: Yes (Hospitalization)
  Sender: FDA-Public Use
  Company Number: GER/USA/10/0015092

PATIENT
  Age: 61 Year
  Sex: Male

DRUGS (7)
  1. METFORMIN HCL [Suspect]
     Indication: TYPE 2 DIABETES MELLITUS
     Dosage: 500 MG, 2 IN 1 D, ORAL
     Route: 048
  2. SIMVASTATIN [Suspect]
     Indication: PRODUCT USED FOR UNKNOWN INDICATION
  3. NIASPAN (NIACIN) (NICOTINIC ACID) [Suspect]
     Indication: PRODUCT USED FOR UNKNOWN INDICATION
     Dosage: 500 MG;
  4. LISINOPRIL [Concomitant]
  5. GLYBURIDE [Concomitant]
  6. METOPROLOL TARTRATE [Concomitant]
  7. HYDROCHLOROTHIAZIDE [Concomitant]

REACTIONS (6)
  - FATIGUE [None]
  - GLYCOSYLATED HAEMOGLOBIN INCREASED [None]
  - HEPATOTOXICITY [None]
  - IDIOSYNCRATIC DRUG REACTION [None]
  - NAUSEA [None]
  - WEIGHT DECREASED [None]
